FAERS Safety Report 12495418 (Version 3)
Quarter: 2016Q3

REPORT INFORMATION
  Report Type: Spontaneous
  Country: GB (occurrence: GB)
  Receive Date: 20160624
  Receipt Date: 20160728
  Transmission Date: 20161109
  Serious: Yes (Hospitalization, Other)
  Sender: FDA-Public Use
  Company Number: GB-WATSON-2016-13274

PATIENT
  Age: 70 Year
  Sex: Female

DRUGS (1)
  1. CIPROFLOXACIN. [Suspect]
     Active Substance: CIPROFLOXACIN
     Indication: INFECTION PROPHYLAXIS
     Dosage: 750 MG, BID
     Route: 065

REACTIONS (2)
  - Tendon rupture [Recovering/Resolving]
  - Tendon disorder [Recovering/Resolving]
